FAERS Safety Report 5872850-6 (Version None)
Quarter: 2008Q3

REPORT INFORMATION
  Report Type: 
  Country: None (occurrence: None)
  Receive Date: 20080905
  Receipt Date: 20080825
  Transmission Date: 20090109
  Serious: Yes (Hospitalization, Congenital Anomaly, Other)
  Sender: FDA-Public Use
  Company Number: US-PFIZER INC-2008050012

PATIENT
  Sex: Male

DRUGS (3)
  1. ZOLOFT [Suspect]
     Indication: POSTPARTUM DEPRESSION
     Route: 064
  2. VITAMIN TAB [Concomitant]
  3. DULCOLAX [Concomitant]

REACTIONS (12)
  - CARDIAC ARREST [None]
  - CONGENITAL OESOPHAGEAL WEB [None]
  - DRUG EXPOSURE DURING PREGNANCY [None]
  - ECZEMA [None]
  - FALLOT'S TETRALOGY [None]
  - GASTROINTESTINAL MALFORMATION [None]
  - HAEMATOCHEZIA [None]
  - HYPOKINESIA [None]
  - JAUNDICE [None]
  - OTITIS MEDIA [None]
  - RESPIRATORY TRACT INFECTION [None]
  - SPEECH DISORDER [None]
